FAERS Safety Report 8817768 (Version 4)
Quarter: 2014Q1

REPORT INFORMATION
  Report Type: Report from Study
  Country: CA (occurrence: CA)
  Receive Date: 20121001
  Receipt Date: 20140227
  Transmission Date: 20141002
  Serious: Yes (Death, Hospitalization, Other)
  Sender: FDA-Public Use
  Company Number: CA-INCYTE CORPORATION-2012IN001470

PATIENT
  Age: 75 Year
  Sex: Female

DRUGS (7)
  1. JAKAVI [Suspect]
     Indication: MYELOFIBROSIS
     Dosage: 15 MG, BID
     Route: 048
     Dates: start: 20120402, end: 201207
  2. JAKAVI [Suspect]
     Dosage: 15 MG, BID
  3. JAKAVI [Suspect]
     Dosage: 5 MG, BID
     Route: 048
     Dates: start: 201301
  4. JAKAVI [Suspect]
     Dosage: UNK,UNK, UNK
  5. FUROSEMIDE [Concomitant]
  6. COVERSYL [Concomitant]
  7. ALLOPURINOL [Concomitant]

REACTIONS (9)
  - Death [Fatal]
  - Epistaxis [Unknown]
  - Renal disorder [Unknown]
  - Platelet count decreased [Recovered/Resolved]
  - Haemoglobin decreased [Recovered/Resolved]
  - Red blood cell count decreased [Not Recovered/Not Resolved]
  - Ear disorder [Unknown]
  - Ear pain [Unknown]
  - Oedema [Unknown]
